FAERS Safety Report 24359107 (Version 1)
Quarter: 2024Q3

REPORT INFORMATION
  Report Type: Report from Study
  Country: IT (occurrence: IT)
  Receive Date: 20240924
  Receipt Date: 20240924
  Transmission Date: 20241016
  Serious: Yes (Other)
  Sender: Unknown Manufacturer
  Company Number: IT-ROCHE-10000020438

PATIENT

DRUGS (2)
  1. PRALSETINIB [Suspect]
     Active Substance: PRALSETINIB
     Indication: Product used for unknown indication
     Dosage: 300 MILLIGRAM, QD
     Route: 065
     Dates: start: 20230901
  2. PRALSETINIB [Suspect]
     Active Substance: PRALSETINIB
     Dosage: 100 MILLIGRAM, QD
     Route: 065

REACTIONS (1)
  - Blood creatine phosphokinase increased [Not Recovered/Not Resolved]
